FAERS Safety Report 9745708 (Version 1)
Quarter: 2013Q4

REPORT INFORMATION
  Report Type: Spontaneous
  Country: ZA (occurrence: ZA)
  Receive Date: 20131211
  Receipt Date: 20131211
  Transmission Date: 20140711
  Serious: Yes (Death, Hospitalization, Other)
  Sender: FDA-Public Use
  Company Number: ZA-ASTELLAS-2013EU010876

PATIENT
  Sex: Male

DRUGS (3)
  1. PROGRAF [Suspect]
     Indication: FOETAL EXPOSURE DURING PREGNANCY
     Dosage: UNK
     Route: 065
     Dates: start: 2011
  2. CELLCEPT /01275102/ [Suspect]
     Dosage: UNK
     Route: 065
  3. PREDNISONE [Suspect]
     Dosage: UNK
     Route: 065

REACTIONS (3)
  - Pulmonary hypertension [Fatal]
  - Congenital oesophageal anomaly [Unknown]
  - Respiratory distress [Unknown]
